FAERS Safety Report 9704124 (Version 1)
Quarter: 2013Q4

REPORT INFORMATION
  Report Type: Spontaneous
  Country: US (occurrence: US)
  Receive Date: 20131122
  Receipt Date: 20131122
  Transmission Date: 20140711
  Serious: No
  Sender: FDA-Public Use
  Company Number: US-GLAXOSMITHKLINE-A1013922A

PATIENT
  Sex: Female

DRUGS (3)
  1. WELLBUTRIN SR [Suspect]
     Indication: DEPRESSION
     Dosage: 150MG TWICE PER DAY
     Route: 048
  2. AMOXICILLIN [Concomitant]
     Dosage: 500MG THREE TIMES PER DAY
     Route: 048
  3. FLONASE [Concomitant]
     Dosage: 1SPR PER DAY
     Route: 045

REACTIONS (1)
  - Drug ineffective [Unknown]
